FAERS Safety Report 21052472 (Version 11)
Quarter: 2023Q2

REPORT INFORMATION
  Report Type: Report from Study
  Country: JP (occurrence: JP)
  Receive Date: 20220707
  Receipt Date: 20230607
  Transmission Date: 20230722
  Serious: Yes (Hospitalization)
  Sender: FDA-Public Use
  Company Number: JP-ARGENX-2022-ARGX-JP000980AA

PATIENT
  Age: 28 Year
  Sex: Female
  Weight: 54.5 kg

DRUGS (10)
  1. VYVGART [Suspect]
     Active Substance: EFGARTIGIMOD ALFA-FCAB
     Indication: Myasthenia gravis
     Dosage: 550 MG, 1/WEEK
     Route: 041
     Dates: start: 20220615, end: 20220707
  2. VYVGART [Suspect]
     Active Substance: EFGARTIGIMOD ALFA-FCAB
     Dosage: 550 MG, 1/WEEK
     Route: 041
     Dates: start: 20220729, end: 20220812
  3. VYVGART [Suspect]
     Active Substance: EFGARTIGIMOD ALFA-FCAB
     Dosage: 550 MG
     Route: 041
     Dates: start: 20220901, end: 20220929
  4. PREDONINE [Concomitant]
     Active Substance: PREDNISOLONE
     Indication: Myasthenia gravis
     Dosage: 15 MG
     Route: 048
     Dates: start: 20210114
  5. NEORAL [Concomitant]
     Active Substance: CYCLOSPORINE
     Indication: Myasthenia gravis
     Dosage: 200 MG
     Route: 048
     Dates: start: 20211104
  6. DAYVIGO [Concomitant]
     Active Substance: LEMBOREXANT
     Indication: Product used for unknown indication
     Dosage: 10 MG
     Route: 048
  7. DAYVIGO [Concomitant]
     Active Substance: LEMBOREXANT
     Dosage: 5 MG
     Route: 048
     Dates: start: 20220210
  8. VONOPRAZAN FUMARATE [Concomitant]
     Active Substance: VONOPRAZAN FUMARATE
     Indication: Product used for unknown indication
     Dosage: 10 MG
     Route: 048
     Dates: start: 20210128
  9. CALCIUM CARBONATE\CHOLECALCIFEROL\MAGNESIUM CARBONATE [Concomitant]
     Active Substance: CALCIUM CARBONATE\CHOLECALCIFEROL\MAGNESIUM CARBONATE
     Indication: Product used for unknown indication
     Dosage: 2 TABLETS, DAILY
     Route: 048
     Dates: start: 20210812
  10. DENOSUMAB [Concomitant]
     Active Substance: DENOSUMAB
     Indication: Product used for unknown indication
     Dosage: 60 MG
     Route: 058
     Dates: start: 20210812

REACTIONS (7)
  - Upper respiratory tract inflammation [Recovered/Resolved]
  - Symptom recurrence [Recovering/Resolving]
  - Headache [Recovered/Resolved]
  - Therapy interrupted [Unknown]
  - Inappropriate schedule of product administration [Unknown]
  - Therapy interrupted [Unknown]
  - Therapeutic product effect incomplete [Unknown]

NARRATIVE: CASE EVENT DATE: 20220615
